FAERS Safety Report 8429784-2 (Version None)
Quarter: 2012Q2

REPORT INFORMATION
  Report Type: 
  Country: None (occurrence: None)
  Receive Date: 20120612
  Receipt Date: 20120531
  Transmission Date: 20120825
  Serious: Yes (Other)
  Sender: FDA-Public Use
  Company Number: PL-NAPPMUNDI-DEU-2012-0009022

PATIENT
  Age: 63 Year

DRUGS (5)
  1. OXYCODONE HCL [Suspect]
     Indication: CANCER PAIN
     Dosage: 40 MG, UNK
     Route: 048
  2. OXYCODONE HCL [Suspect]
     Dosage: 80 MG, UNK
     Route: 048
  3. OXYCODONE HCL [Suspect]
     Dosage: 60 MG, UNK
     Route: 048
  4. OXYCODONE HCL [Suspect]
     Dosage: 100 MG, UNK
     Route: 048
  5. OXYCODONE HCL [Suspect]
     Dosage: 80 MG, UNK
     Route: 048

REACTIONS (5)
  - HALLUCINATION [None]
  - AGITATION [None]
  - AGGRESSION [None]
  - UNEVALUABLE EVENT [None]
  - COGNITIVE DISORDER [None]
